FAERS Safety Report 5904268-1 (Version None)
Quarter: 2008Q3

REPORT INFORMATION
  Report Type: 
  Country: None (occurrence: None)
  Receive Date: 20080909
  Receipt Date: 20080515
  Transmission Date: 20090109
  Serious: Yes (Hospitalization)
  Sender: FDA-Public Use
  Company Number: 163-20785-08031609

PATIENT
  Age: 80 Year
  Sex: Male

DRUGS (5)
  1. THALOMID [Suspect]
     Indication: MULTIPLE MYELOMA
     Dosage: 100MG-200MG, QD, ORAL
     Route: 048
     Dates: start: 20080207, end: 20080320
  2. ENOXAPARIN SODIUM [Concomitant]
  3. AMLODIPINE (AMLODIPINE) [Concomitant]
  4. LISINOPRIL [Concomitant]
  5. DEXAMETHASONE TAB [Concomitant]

REACTIONS (3)
  - BRADYCARDIA [None]
  - ORTHOSTATIC HYPOTENSION [None]
  - SINUS TACHYCARDIA [None]
